FAERS Safety Report 22737085 (Version 8)
Quarter: 2025Q4

REPORT INFORMATION
  Report Type: Spontaneous
  Country: IN (occurrence: IN)
  Receive Date: 20230721
  Receipt Date: 20251205
  Transmission Date: 20260118
  Serious: Yes (Hospitalization, Other)
  Sender: PFIZER
  Company Number: IN-PFIZER INC-PV202300032964

PATIENT
  Age: 68 Year
  Sex: Female

DRUGS (5)
  1. LORLATINIB [Suspect]
     Active Substance: LORLATINIB
     Indication: Lung adenocarcinoma
     Dosage: 100 MG, 1X/DAY
     Route: 048
     Dates: start: 20221207
  2. TELISMART AM [Concomitant]
     Dosage: UNK
     Dates: start: 202211
  3. NEBIVOL [Concomitant]
     Dosage: 2.5
     Dates: start: 202211
  4. TORSEMIDE [Concomitant]
     Active Substance: TORSEMIDE
     Dosage: 5
     Dates: start: 202211
  5. ASPIRIN\ATORVASTATIN [Concomitant]
     Active Substance: ASPIRIN\ATORVASTATIN
     Dosage: UNK
     Dates: start: 202211

REACTIONS (15)
  - Cardiac failure [Unknown]
  - Pleural effusion [Recovering/Resolving]
  - Respiratory failure [Unknown]
  - Dyspnoea [Unknown]
  - Hallucination [Not Recovered/Not Resolved]
  - Lung neoplasm malignant [Unknown]
  - Malignant neoplasm progression [Unknown]
  - Chest X-ray abnormal [Unknown]
  - Weight increased [Unknown]
  - Urinary tract infection [Unknown]
  - Amnesia [Not Recovered/Not Resolved]
  - Haemoglobin decreased [Unknown]
  - Vitamin D decreased [Unknown]
  - Diarrhoea [Unknown]
  - Lymphadenopathy [Recovering/Resolving]

NARRATIVE: CASE EVENT DATE: 20230110
